FAERS Safety Report 10042026 (Version 2)
Quarter: 2014Q1

REPORT INFORMATION
  Report Type: Spontaneous
  Country: US (occurrence: US)
  Receive Date: 20140327
  Receipt Date: 20140327
  Transmission Date: 20141002
  Serious: No
  Sender: FDA-Public Use
  Company Number: US-PFIZER INC-2014070717

PATIENT
  Age: 80 Year
  Sex: Male
  Weight: 95.2 kg

DRUGS (8)
  1. LYRICA [Suspect]
     Indication: PROCEDURAL PAIN
     Dosage: 75 MG, 2X/DAY
     Dates: start: 20140213
  2. LYRICA [Suspect]
     Dosage: UNK
  3. LISINOPRIL [Concomitant]
     Indication: HYPERTENSION
     Dosage: 10 MG, 2X/DAY
  4. SIMVASTATIN [Concomitant]
     Indication: BLOOD CHOLESTEROL INCREASED
     Dosage: UNK, UNK (HALF OF 20MG TABLET) DAILY
  5. WARFARIN [Concomitant]
     Indication: PROTHROMBIN TIME ABNORMAL
     Dosage: UNK (2.5MG ON MON AND FRI AND 1.25MG ON TUE, WED, THUR, SAT AND SUNDAY),1X/DAY
  6. FINASTERIDE [Concomitant]
     Indication: PROSTATOMEGALY
     Dosage: 5 MG, DAILY
  7. DIAZEPAM [Concomitant]
     Dosage: UNK
  8. BUSPAR [Concomitant]
     Dosage: UNK

REACTIONS (2)
  - Drug ineffective [Unknown]
  - Personality change [Unknown]
